FAERS Safety Report 5126131-9 (Version None)
Quarter: 2006Q4

REPORT INFORMATION
  Report Type: 
  Country: None (occurrence: None)
  Receive Date: 20061012
  Receipt Date: 20061003
  Transmission Date: 20070319
  Serious: Yes (Hospitalization, Other)
  Sender: FDA-Public Use
  Company Number: FR-BRISTOL-MYERS SQUIBB COMPANY-13532254

PATIENT
  Age: 46 Year
  Sex: Male

DRUGS (5)
  1. SUSTIVA [Suspect]
     Route: 048
  2. COMBIVIR [Suspect]
     Dates: end: 20060619
  3. ZOLPIDEM TARTRATE [Suspect]
  4. RIFATER [Suspect]
     Dates: start: 20060403
  5. SUBUTEX [Suspect]

REACTIONS (3)
  - ANAEMIA [None]
  - NEUTROPENIA [None]
  - WEIGHT DECREASED [None]
